FAERS Safety Report 7642138-1 (Version None)
Quarter: 2011Q3

REPORT INFORMATION
  Report Type: 
  Country: None (occurrence: None)
  Receive Date: 20110722
  Receipt Date: 20110713
  Transmission Date: 20111222
  Serious: Yes (Hospitalization, Other)
  Sender: FDA-Public Use
  Company Number: 2011SP032644

PATIENT
  Age: 62 Year
  Sex: Male
  Weight: 54 kg

DRUGS (1)
  1. PEGINTRON (PEGINTERFERON ALFA-2B /01543001) [Suspect]
     Indication: HEPATITIS C
     Dosage: QW, SC
     Route: 058
     Dates: start: 20101001, end: 20110501

REACTIONS (4)
  - ASTHENIA [None]
  - DEHYDRATION [None]
  - ASCITES [None]
  - WEIGHT DECREASED [None]
